FAERS Safety Report 17122460 (Version 2)
Quarter: 2020Q1

REPORT INFORMATION
  Report Type: Spontaneous
  Country: US (occurrence: US)
  Receive Date: 20191206
  Receipt Date: 20200102
  Transmission Date: 20200409
  Serious: No
  Sender: FDA-Public Use
  Company Number: US-EYEVANCE PHARMACEUTICALS-2019EYE00085

PATIENT
  Age: 69 Year
  Sex: Female

DRUGS (1)
  1. FLAREX [Suspect]
     Active Substance: FLUOROMETHOLONE ACETATE

REACTIONS (1)
  - No adverse event [Not Recovered/Not Resolved]

NARRATIVE: CASE EVENT DATE: 20191120
